FAERS Safety Report 25661529 (Version 1)
Quarter: 2025Q3

REPORT INFORMATION
  Report Type: Spontaneous
  Country: TN (occurrence: TN)
  Receive Date: 20250808
  Receipt Date: 20250808
  Transmission Date: 20251021
  Serious: Yes (Death, Hospitalization, Other)
  Sender: VERITY PHARMACEUTICALS INC.
  Company Number: TN-VER-202500001

PATIENT
  Age: 55 Year
  Sex: Male

DRUGS (7)
  1. TRIPTORELIN PAMOATE [Suspect]
     Active Substance: TRIPTORELIN PAMOATE
     Indication: Breast cancer
     Route: 065
  2. LETROZOLE [Suspect]
     Active Substance: LETROZOLE
     Indication: Breast cancer
     Route: 065
  3. UNSPECIFIED INGREDIENT [Suspect]
     Active Substance: UNSPECIFIED INGREDIENT
     Indication: Breast cancer
     Route: 065
  4. TAMOXIFEN [Suspect]
     Active Substance: TAMOXIFEN
     Indication: Breast cancer
     Route: 065
  5. DOCETAXEL [Suspect]
     Active Substance: DOCETAXEL
     Indication: Breast cancer
     Route: 065
  6. AZATHIOPRINE [Concomitant]
     Active Substance: AZATHIOPRINE
     Indication: Breast cancer
     Route: 065
  7. PREDNISONE [Concomitant]
     Active Substance: PREDNISONE
     Indication: Breast cancer
     Route: 065

REACTIONS (9)
  - Gait disturbance [Unknown]
  - Spinal pain [Unknown]
  - Death [Fatal]
  - Hypotonia [Unknown]
  - Spinal cord infection [Unknown]
  - Pelvic mass [Unknown]
  - Sphincter of Oddi dysfunction [Unknown]
  - Vertebral lesion [Unknown]
  - Weight decreased [Unknown]

NARRATIVE: CASE EVENT DATE: 20240401
